FAERS Safety Report 10549537 (Version 1)
Quarter: 2014Q4

REPORT INFORMATION
  Report Type: Spontaneous
  Country: US (occurrence: None)
  Receive Date: 20141020
  Receipt Date: 20141020
  Transmission Date: 20150529
  Serious: No
  Sender: FDA-Public Use
  Company Number: AEGR000680

PATIENT
  Age: 59 Year
  Sex: Female

DRUGS (1)
  1. JUXTAPID [Suspect]
     Active Substance: LOMITAPIDE MESYLATE
     Indication: PRODUCT USED FOR UNKNOWN INDICATION
     Route: 048
     Dates: start: 20140811

REACTIONS (3)
  - Abdominal pain [None]
  - Frequent bowel movements [None]
  - Product used for unknown indication [None]

NARRATIVE: CASE EVENT DATE: 20140811
